FAERS Safety Report 18324643 (Version 3)
Quarter: 2020Q4

REPORT INFORMATION
  Report Type: Spontaneous
  Country: TR (occurrence: TR)
  Receive Date: 20200929
  Receipt Date: 20201218
  Transmission Date: 20210113
  Serious: No
  Sender: FDA-Public Use
  Company Number: TR-LUPIN PHARMACEUTICALS INC.-2020-05897

PATIENT
  Age: 27 Year
  Sex: Female

DRUGS (5)
  1. MAGNESIUM OXIDE. [Suspect]
     Active Substance: MAGNESIUM OXIDE
     Indication: HYPOMAGNESAEMIA
     Dosage: EQUIVALENT TO MG+2 ION OF 1460 MG/DAY, QD
     Route: 048
  2. MAGNESIUM OXIDE. [Suspect]
     Active Substance: MAGNESIUM OXIDE
     Indication: GITELMAN^S SYNDROME
  3. POTASSIUM [Suspect]
     Active Substance: POTASSIUM
     Indication: GITELMAN^S SYNDROME
  4. AMILORIDE [Suspect]
     Active Substance: AMILORIDE
     Indication: HYPOKALAEMIA
     Dosage: 10 MILLIGRAM, QD
     Route: 065
  5. POTASSIUM [Suspect]
     Active Substance: POTASSIUM
     Indication: HYPOKALAEMIA
     Dosage: EQUIVALENT TO K+ ION OF 160 MMOL/DAY
     Route: 048

REACTIONS (1)
  - Exposure during pregnancy [Unknown]
